FAERS Safety Report 11830362 (Version 3)
Quarter: 2015Q4

REPORT INFORMATION
  Report Type: Spontaneous
  Country: US (occurrence: US)
  Receive Date: 20151214
  Receipt Date: 20151214
  Transmission Date: 20160305
  Serious: Yes (Disabling)
  Sender: FDA-Public Use
  Company Number: US-JNJFOC-20151107899

PATIENT
  Age: 42 Year
  Sex: Female
  Weight: 46.27 kg

DRUGS (1)
  1. LEVAQUIN [Suspect]
     Active Substance: LEVOFLOXACIN
     Indication: URINARY TRACT INFECTION
     Route: 048

REACTIONS (10)
  - Dyspnoea [Unknown]
  - Pain [Unknown]
  - Impaired work ability [Unknown]
  - Tinnitus [Unknown]
  - Dysstasia [Unknown]
  - Memory impairment [Unknown]
  - Asthenia [Unknown]
  - Bone pain [Unknown]
  - Weight decreased [Unknown]
  - Tendonitis [Unknown]
